FAERS Safety Report 5213855-8 (Version None)
Quarter: 2007Q1

REPORT INFORMATION
  Report Type: 
  Country: None (occurrence: None)
  Receive Date: 20070117
  Receipt Date: 20070103
  Transmission Date: 20070707
  Serious: Yes (Other)
  Sender: FDA-Public Use
  Company Number: 234573

PATIENT

DRUGS (3)
  1. AVASTIN [Suspect]
     Indication: SQUAMOUS CELL CARCINOMA
     Dosage: 5 MG/KG, Q2W,
  2. DOCETAXEL (DOCETAXEL) [Suspect]
     Indication: SQUAMOUS CELL CARCINOMA
     Dosage: 20 MG/M2, 1/WEEK,
  3. RADIATION THERAPY (RADIATION THERAPY) [Suspect]
     Indication: SQUAMOUS CELL CARCINOMA
     Dosage: 1.8 GY, QD,

REACTIONS (3)
  - LARYNGEAL DISORDER [None]
  - NECROSIS [None]
  - RADIATION INJURY [None]
